FAERS Safety Report 5843499-6 (Version None)
Quarter: 2008Q3

REPORT INFORMATION
  Report Type: 
  Country: None (occurrence: None)
  Receive Date: 20080813
  Receipt Date: 20080802
  Transmission Date: 20090109
  Serious: Yes (Hospitalization)
  Sender: FDA-Public Use
  Company Number: GB-ROCHE-579052

PATIENT
  Sex: Female
  Weight: 82.6 kg

DRUGS (2)
  1. ORLISTAT [Suspect]
     Indication: OBESITY
     Route: 048
     Dates: start: 20080421, end: 20080710
  2. NOVAMIX [Concomitant]
     Dosage: ENTERED AS NOVA MIX.
     Route: 065

REACTIONS (1)
  - DIABETIC COMA [None]
